FAERS Safety Report 9173087 (Version 1)
Quarter: 2013Q1

REPORT INFORMATION
  Report Type: Spontaneous
  Country: US (occurrence: US)
  Receive Date: 20130320
  Receipt Date: 20130320
  Transmission Date: 20140127
  Serious: Yes (Hospitalization)
  Sender: FDA-Public Use
  Company Number: US-MERCK-1303USA009219

PATIENT
  Age: 68 Year
  Sex: Male

DRUGS (6)
  1. JANUMET [Suspect]
     Indication: TYPE 2 DIABETES MELLITUS
     Dosage: 50/1000 MG, BID
     Route: 048
     Dates: end: 20130313
  2. PRADAXA [Concomitant]
  3. LIPITOR [Concomitant]
  4. AMLODIPINE [Concomitant]
  5. METOPROLOL [Concomitant]
  6. LISINOPRIL [Concomitant]

REACTIONS (2)
  - Heart rate decreased [Recovering/Resolving]
  - Blood potassium increased [Recovering/Resolving]
